FAERS Safety Report 11931813 (Version 2)
Quarter: 2016Q2

REPORT INFORMATION
  Report Type: Spontaneous
  Country: US (occurrence: US)
  Receive Date: 20160120
  Receipt Date: 20160412
  Transmission Date: 20160815
  Serious: No
  Sender: FDA-Public Use
  Company Number: US-INCYTE CORPORATION-2015IN006353

PATIENT
  Age: 66 Year
  Sex: Male

DRUGS (3)
  1. ADVIL [Concomitant]
     Active Substance: IBUPROFEN
     Indication: GOUT
  2. THYROXINE [Concomitant]
     Active Substance: LEVOTHYROXINE
     Indication: PRODUCT USED FOR UNKNOWN INDICATION
     Dosage: UNK
  3. JAKAFI [Suspect]
     Active Substance: RUXOLITINIB
     Indication: MYELOFIBROSIS
     Dosage: 20 MG, BID
     Route: 048
     Dates: start: 20151126

REACTIONS (7)
  - Headache [Unknown]
  - White blood cell count increased [Unknown]
  - Arthralgia [Unknown]
  - Anaemia [Unknown]
  - Increased upper airway secretion [Unknown]
  - Cough [Unknown]
  - Gout [Unknown]

NARRATIVE: CASE EVENT DATE: 201511
